FAERS Safety Report 12685172 (Version 2)
Quarter: 2016Q3

REPORT INFORMATION
  Report Type: Spontaneous
  Country: JP (occurrence: JP)
  Receive Date: 20160825
  Receipt Date: 20160914
  Transmission Date: 20161109
  Serious: Yes (Death, Other)
  Sender: FDA-Public Use
  Company Number: JP-TAKEDA-2016MPI007457

PATIENT
  Age: 73 Year
  Sex: Female
  Weight: 38 kg

DRUGS (4)
  1. ALKERAN [Concomitant]
     Active Substance: MELPHALAN
     Dosage: 8 MG, QD
     Route: 048
     Dates: start: 20160406, end: 20160505
  2. VELCADE [Suspect]
     Active Substance: BORTEZOMIB
     Indication: PLASMA CELL MYELOMA
     Dosage: 1.3 MG/M2, 1/WEEK
     Route: 058
     Dates: start: 20160330, end: 20160810
  3. DEXAMETHASONE. [Suspect]
     Active Substance: DEXAMETHASONE
     Indication: PLASMA CELL MYELOMA
     Dosage: 20 MG, 2/WEEK
     Route: 048
     Dates: start: 20160330, end: 20160810
  4. REVLIMID [Suspect]
     Active Substance: LENALIDOMIDE
     Indication: PLASMA CELL MYELOMA
     Dosage: 10 MG, QD
     Route: 048
     Dates: start: 20160523, end: 20160807

REACTIONS (2)
  - Septic shock [Fatal]
  - Rash [Recovering/Resolving]

NARRATIVE: CASE EVENT DATE: 201608
